FAERS Safety Report 6872266-X (Version None)
Quarter: 2010Q3

REPORT INFORMATION
  Report Type: 
  Country: None (occurrence: None)
  Receive Date: 20100723
  Receipt Date: 20100716
  Transmission Date: 20110219
  Serious: Yes (Other)
  Sender: FDA-Public Use
  Company Number: MX-ROCHE-453005

PATIENT
  Sex: Female
  Weight: 61 kg

DRUGS (5)
  1. TOCILIZUMAB [Suspect]
     Indication: RHEUMATOID ARTHRITIS
     Dosage: DOSAGE: 8MG/KG
     Route: 042
     Dates: start: 20060530, end: 20060530
  2. BLINDED TOCILIZUMAB [Suspect]
     Indication: RHEUMATOID ARTHRITIS
     Dosage: TAKEN IN STUDY WA18063
     Route: 042
     Dates: start: 20051018, end: 20060502
  3. METHOTREXATE [Concomitant]
     Dosage: FREQUENTIE: ^QS^
     Dates: start: 20060315, end: 20060618
  4. FOLIC ACID [Concomitant]
     Dates: start: 20050315, end: 20060618
  5. MELOXICAM [Concomitant]
     Dates: start: 20041201, end: 20060618

REACTIONS (1)
  - ACUTE FEBRILE NEUTROPHILIC DERMATOSIS [None]
